FAERS Safety Report 7534169-7 (Version None)
Quarter: 2011Q2

REPORT INFORMATION
  Report Type: 
  Country: None (occurrence: None)
  Receive Date: 20110608
  Receipt Date: 20061113
  Transmission Date: 20111010
  Serious: Yes (Hospitalization, Other)
  Sender: FDA-Public Use
  Company Number: PHMT2006CA02054

PATIENT
  Sex: Female

DRUGS (6)
  1. INTERFERON ALFA [Concomitant]
     Dosage: UNK
  2. RANITIDINE [Concomitant]
     Dosage: UNK
  3. HYDROCHLOROTHIAZIDE [Concomitant]
     Dosage: UNK
  4. WARFARIN SODIUM [Concomitant]
     Dosage: UNK
  5. SANDOSTATIN LAR [Suspect]
     Indication: CARCINOID TUMOUR
     Dosage: 60 MG, QMO
     Dates: start: 20060107
  6. VASOTEC [Concomitant]
     Dosage: UNK

REACTIONS (4)
  - CYSTITIS [None]
  - FATIGUE [None]
  - ATRIAL FIBRILLATION [None]
  - INSOMNIA [None]
